FAERS Safety Report 18303314 (Version 1)
Quarter: 2020Q3

REPORT INFORMATION
  Report Type: Spontaneous
  Country: US (occurrence: US)
  Receive Date: 20200923
  Receipt Date: 20200923
  Transmission Date: 20201103
  Serious: Yes (Other)
  Sender: FDA-Public Use
  Company Number: NVSC2020US255165

PATIENT
  Sex: Female

DRUGS (1)
  1. ENTRESTO [Suspect]
     Active Substance: SACUBITRIL\VALSARTAN
     Indication: PRODUCT USED FOR UNKNOWN INDICATION
     Dosage: 100 MG
     Route: 065

REACTIONS (6)
  - Nerve compression [Unknown]
  - Heart rate increased [Unknown]
  - Hypotension [Unknown]
  - Plasma cell myeloma [Unknown]
  - Insomnia [Unknown]
  - Headache [Unknown]
